FAERS Safety Report 20820914 (Version 1)
Quarter: 2022Q2

REPORT INFORMATION
  Report Type: Report from Study
  Country: DO (occurrence: DO)
  Receive Date: 20220512
  Receipt Date: 20220512
  Transmission Date: 20220720
  Serious: Yes (Other)
  Sender: FDA-Public Use
  Company Number: DO-ABBVIE-22K-279-4389631-00

PATIENT
  Age: 55 Year
  Sex: Female
  Weight: 68.100 kg

DRUGS (1)
  1. HUMIRA [Suspect]
     Active Substance: ADALIMUMAB
     Indication: Rheumatoid arthritis
     Route: 058
     Dates: start: 20111104

REACTIONS (4)
  - Tooth disorder [Recovering/Resolving]
  - Toothache [Recovering/Resolving]
  - Weight increased [Recovering/Resolving]
  - Post procedural discomfort [Recovering/Resolving]

NARRATIVE: CASE EVENT DATE: 20220401
